FAERS Safety Report 6197041-3 (Version None)
Quarter: 2009Q2

REPORT INFORMATION
  Report Type: 
  Country: None (occurrence: None)
  Receive Date: 20090520
  Receipt Date: 20090513
  Transmission Date: 20091009
  Serious: Yes (Death, Other)
  Sender: FDA-Public Use
  Company Number: US-PFIZER INC-2008050263

PATIENT
  Sex: Female
  Weight: 52.154 kg

DRUGS (3)
  1. DILANTIN [Suspect]
     Indication: CONVULSION
     Dosage: 400 MG DAILY
     Route: 048
     Dates: start: 19600101
  2. ALLERGY MEDICATION [Concomitant]
     Dosage: UNK
  3. VITAMINS [Concomitant]
     Dosage: UNK

REACTIONS (3)
  - BLOOD COUNT ABNORMAL [None]
  - DEATH [None]
  - DYSPLASIA [None]
